FAERS Safety Report 25206491 (Version 2)
Quarter: 2025Q2

REPORT INFORMATION
  Report Type: Report from Study
  Country: US (occurrence: US)
  Receive Date: 20250417
  Receipt Date: 20250523
  Transmission Date: 20250717
  Serious: Yes (Other)
  Sender: ACADIA PHARMACEUTICALS
  Company Number: US-ACADIA PHARMACEUTICALS INC.-ACA-2025-PIM-004480

PATIENT
  Sex: Female

DRUGS (4)
  1. NUPLAZID [Suspect]
     Active Substance: PIMAVANSERIN TARTRATE
     Indication: Parkinson^s disease psychosis
     Dosage: 34 MILLIGRAM, QD
     Route: 048
  2. DROXIDOPA [Concomitant]
     Active Substance: DROXIDOPA
  3. SINEMET [Concomitant]
     Active Substance: CARBIDOPA\LEVODOPA
  4. RIVASTIGMINE [Concomitant]
     Active Substance: RIVASTIGMINE
     Indication: Dementia with Lewy bodies
     Dosage: 1.5 MILLIGRAM, BID

REACTIONS (2)
  - Hallucination [Unknown]
  - Agitation [Unknown]
